FAERS Safety Report 19856051 (Version 1)
Quarter: 2021Q3

REPORT INFORMATION
  Report Type: Spontaneous
  Country: DE (occurrence: DE)
  Receive Date: 20210920
  Receipt Date: 20210920
  Transmission Date: 20211014
  Serious: Yes (Hospitalization)
  Sender: FDA-Public Use
  Company Number: DE-ACCORD-238932

PATIENT
  Age: 44 Year
  Sex: Female
  Weight: 163 kg

DRUGS (18)
  1. STELARA [Suspect]
     Active Substance: USTEKINUMAB
     Indication: PRODUCT USED FOR UNKNOWN INDICATION
     Dosage: 90 MG / ML, PAUSE, PRE?FILLED SYRINGES
     Route: 058
  2. PROTAPHANE [Concomitant]
     Active Substance: INSULIN HUMAN
     Dosage: STRENGTH:300 IU 100 IU / ML, 300 IE/3ML, 0?0?60?0, PRE?FILLED SYRINGES
     Route: 058
  3. FOL LICHTENSTEIN [Concomitant]
     Dosage: 5 MG, MONDAY
     Route: 048
  4. IBUPROFEN. [Concomitant]
     Active Substance: IBUPROFEN
     Dosage: 800 MG, AS REQUIRED
     Route: 048
  5. VICTOZA [Concomitant]
     Active Substance: LIRAGLUTIDE
     Dosage: 6 MG / ML, MORNING, PRE?FILLED SYRINGES
     Route: 058
  6. CANDESARTAN. [Concomitant]
     Active Substance: CANDESARTAN
     Dosage: 16 MG, 0?0?1?0
     Route: 048
  7. DEKRISTOL [Concomitant]
     Active Substance: CHOLECALCIFEROL
     Dosage: 20,000 IU, SATURDAYS
     Route: 048
  8. PANTOPRAZOLE [Concomitant]
     Active Substance: PANTOPRAZOLE
     Dosage: 20 MG, 1?0?0?0
     Route: 048
  9. ATORVASTATIN [Concomitant]
     Active Substance: ATORVASTATIN
     Dosage: 20 MG, 0?0?1?0
     Route: 048
  10. METHOTREXATE. [Suspect]
     Active Substance: METHOTREXATE
     Indication: PRODUCT USED FOR UNKNOWN INDICATION
     Dosage: 12.5 MG / 0.31ML, PAUSE, PRE?FILLED SYRINGES
     Route: 058
  11. RELVAR ELLIPTA [Concomitant]
     Active Substance: FLUTICASONE FUROATE\VILANTEROL TRIFENATATE
     Dosage: 92/22 MCG, 1?0?0?0
     Route: 055
  12. SALBUHEXAL [Concomitant]
     Active Substance: ALBUTEROL
     Dosage: 0.1 MG, AS REQUIRED, METERED DOSE INHALER
     Route: 055
  13. EFEROX [Concomitant]
     Active Substance: LEVOTHYROXINE SODIUM
     Dosage: 50 MCG, 1?0?0?0
     Route: 048
  14. METFORMIN [Concomitant]
     Active Substance: METFORMIN HYDROCHLORIDE
     Dosage: 1000 MG, 1?0?1?0
     Route: 048
  15. NITRENDIPINE [Concomitant]
     Active Substance: NITRENDIPINE
     Dosage: 20 MG, 1?0?1?0
     Route: 048
  16. CANDESARTAN W / HYDROCHLOROTHIAZIDE [Concomitant]
     Dosage: 16/12.5 MG, 1?0?0?0
     Route: 048
  17. DULOXEHEXAL [Concomitant]
     Active Substance: DULOXETINE HYDROCHLORIDE
     Dosage: 60 MG, 1?0?1?0
     Route: 048
  18. NOVORAPID [Concomitant]
     Active Substance: INSULIN ASPART
     Dosage: 300 U / 3ML, ACCORDING TO THE SCHEME, PRE?FILLED SYRINGES
     Route: 058

REACTIONS (5)
  - Dyspnoea exertional [Unknown]
  - Coronavirus test positive [Unknown]
  - Dyspnoea [Unknown]
  - Chest discomfort [Unknown]
  - Cough [Unknown]
